FAERS Safety Report 15722191 (Version 1)
Quarter: 2018Q4

REPORT INFORMATION
  Report Type: Report from Study
  Country: US (occurrence: US)
  Receive Date: 20181214
  Receipt Date: 20181214
  Transmission Date: 20190205
  Serious: Yes (Hospitalization, Other)
  Sender: FDA-Public Use
  Company Number: US-UCBSA-2018053680

PATIENT
  Sex: Female

DRUGS (1)
  1. LACOSAMIDE. [Suspect]
     Active Substance: LACOSAMIDE
     Indication: SEIZURE
     Dosage: 50 MG, 2X/DAY (BID)

REACTIONS (5)
  - Vertigo [Unknown]
  - Pruritus [Unknown]
  - Cerebrovascular accident [Unknown]
  - Diarrhoea [Unknown]
  - Vomiting [Unknown]
